FAERS Safety Report 14264646 (Version 2)
Quarter: 2017Q4

REPORT INFORMATION
  Report Type: Spontaneous
  Country: NL (occurrence: NL)
  Receive Date: 20171208
  Receipt Date: 20171229
  Transmission Date: 20180321
  Serious: Yes (Other)
  Sender: FDA-Public Use
  Company Number: NL-TEVA-2017-NL-831930

PATIENT
  Age: 88 Year
  Sex: Female

DRUGS (8)
  1. VANCOMYCIN [Suspect]
     Active Substance: VANCOMYCIN
     Indication: DEVICE RELATED INFECTION
  2. OXYCODONE [Concomitant]
     Active Substance: OXYCODONE
     Route: 065
  3. COLECALCIFEROL [Concomitant]
     Active Substance: CHOLECALCIFEROL
     Route: 065
  4. GENTAMICIN. [Concomitant]
     Active Substance: GENTAMICIN
     Route: 065
  5. NADROPARIN [Concomitant]
     Active Substance: NADROPARIN
     Route: 065
  6. RIFAMPICIN [Concomitant]
     Active Substance: RIFAMPIN
  7. PARACETAMOL [Concomitant]
     Active Substance: ACETAMINOPHEN
     Route: 065
  8. PANTOPRAZOLE [Concomitant]
     Active Substance: PANTOPRAZOLE
     Route: 065

REACTIONS (1)
  - Linear IgA disease [Recovering/Resolving]
